FAERS Safety Report 6283318-X (Version None)
Quarter: 2009Q3

REPORT INFORMATION
  Report Type: 
  Country: None (occurrence: None)
  Receive Date: 20090722
  Receipt Date: 20090722
  Transmission Date: 20100115
  Serious: No
  Sender: FDA-Public Use
  Company Number: None

PATIENT
  Age: 51 Year
  Sex: Female
  Weight: 81.6475 kg

DRUGS (1)
  1. ZICAM NASAL SWABS MATRIXX [Suspect]
     Indication: NASOPHARYNGITIS
     Dosage: ONE SWAB, INTRANASALLY EVERY 3 HOURS NASAL
     Route: 045
     Dates: start: 20041120, end: 20081230

REACTIONS (1)
  - HYPOSMIA [None]
